FAERS Safety Report 16778849 (Version 1)
Quarter: 2019Q3

REPORT INFORMATION
  Report Type: Spontaneous
  Country: TR (occurrence: TR)
  Receive Date: 20190906
  Receipt Date: 20190906
  Transmission Date: 20191005
  Serious: Yes (Hospitalization, Other)
  Sender: FDA-Public Use
  Company Number: TR-TEVA-2019-TR-1105245

PATIENT
  Age: 17 Year
  Sex: Male

DRUGS (7)
  1. METHOTREXATE. [Suspect]
     Active Substance: METHOTREXATE
     Indication: SAPHO SYNDROME
     Route: 065
  2. DAPSONE. [Suspect]
     Active Substance: DAPSONE
     Indication: SAPHO SYNDROME
     Dosage: 100 MILLIGRAM DAILY;
     Route: 065
  3. ISOTRETINOIN. [Suspect]
     Active Substance: ISOTRETINOIN
     Indication: ACNE CONGLOBATA
     Dosage: 30 MILLIGRAM DAILY;
     Route: 048
  4. AMPICILLIN/SULBACTAM [Suspect]
     Active Substance: AMPICILLIN SODIUM\SULBACTAM SODIUM
     Indication: SAPHO SYNDROME
     Route: 065
  5. CLINDAMYCIN. [Suspect]
     Active Substance: CLINDAMYCIN
     Indication: SAPHO SYNDROME
     Route: 065
  6. METHYLPREDNISOLONE. [Concomitant]
     Active Substance: METHYLPREDNISOLONE
     Indication: SAPHO SYNDROME
     Dosage: TAPERED FOR 6 WEEKS
     Route: 065
  7. ETANERCEPT [Concomitant]
     Active Substance: ETANERCEPT
     Indication: SAPHO SYNDROME
     Route: 065

REACTIONS (5)
  - Acne fulminans [Recovering/Resolving]
  - SAPHO syndrome [Recovering/Resolving]
  - Gait inability [Recovered/Resolved]
  - Drug hypersensitivity [Unknown]
  - Drug ineffective [Unknown]
